FAERS Safety Report 21931405 (Version 1)
Quarter: 2023Q1

REPORT INFORMATION
  Report Type: Report from Study
  Country: GB (occurrence: GB)
  Receive Date: 20230131
  Receipt Date: 20230131
  Transmission Date: 20230418
  Serious: Yes (Other)
  Sender: FDA-Public Use
  Company Number: GB-SAMSUNG BIOEPIS-SB-2022-25089

PATIENT
  Sex: Female

DRUGS (3)
  1. ETANERCEPT [Suspect]
     Active Substance: ETANERCEPT
     Indication: Rheumatoid arthritis
     Route: 058
     Dates: start: 20220921
  2. IBUPROFEN [Concomitant]
     Active Substance: IBUPROFEN
     Indication: Product used for unknown indication
     Dosage: UNKNOWN
     Route: 065
  3. ACETAMINOPHEN [Concomitant]
     Active Substance: ACETAMINOPHEN
     Indication: Product used for unknown indication
     Dosage: UNKNOWN
     Route: 065

REACTIONS (11)
  - Visual impairment [Unknown]
  - Eye discharge [Unknown]
  - Injection site bruising [Unknown]
  - Injection site pain [Unknown]
  - Migraine [Unknown]
  - Disturbance in attention [Unknown]
  - Illness [Unknown]
  - Malaise [Unknown]
  - Herpes zoster [Unknown]
  - Impaired work ability [Unknown]
  - Fine motor skill dysfunction [Unknown]
